FAERS Safety Report 4561790-0 (Version None)
Quarter: 2005Q1

REPORT INFORMATION
  Report Type: 
  Country: None (occurrence: None)
  Receive Date: 20050125
  Receipt Date: 20050117
  Transmission Date: 20050727
  Serious: Yes (Other)
  Sender: FDA-Public Use
  Company Number: US-2004-029812

PATIENT
  Age: 55 Year
  Sex: Female
  Weight: 82.5 kg

DRUGS (7)
  1. CLIMARA [Suspect]
     Indication: HORMONE REPLACEMENT THERAPY
     Dosage: TRANSDERMAL
     Route: 062
     Dates: start: 19960501
  2. PREMARIN [Suspect]
     Indication: HORMONE REPLACEMENT THERAPY
     Dates: start: 19801021, end: 19900101
  3. VIVELLE [Suspect]
     Indication: HORMONE REPLACEMENT THERAPY
  4. ALORA [Suspect]
     Indication: HORMONE REPLACEMENT THERAPY
  5. CELEBREX [Concomitant]
  6. MEDROL [Concomitant]
  7. BELLERGAL-S (BELLADONNA ALKALOIDS, PHENOBARTIAL) [Concomitant]

REACTIONS (3)
  - BREAST CANCER FEMALE [None]
  - CRYING [None]
  - DEPRESSION [None]
